FAERS Safety Report 16807620 (Version 1)
Quarter: 2019Q3

REPORT INFORMATION
  Report Type: Report from Study
  Country: KR (occurrence: KR)
  Receive Date: 20190914
  Receipt Date: 20190914
  Transmission Date: 20191005
  Serious: Yes (Hospitalization)
  Sender: FDA-Public Use
  Company Number: KR-ROCHE-2136446

PATIENT
  Age: 57 Year
  Sex: Male

DRUGS (8)
  1. AMLODIPINE [Concomitant]
     Active Substance: AMLODIPINE BESYLATE
     Indication: HYPERTENSION
     Dosage: 5 MG, 1T, QD
     Route: 065
     Dates: start: 20140128
  2. ASPIRIN. [Concomitant]
     Active Substance: ASPIRIN
     Indication: ATRIAL FIBRILLATION
     Dosage: 100 MG, 1T,  QOD
     Route: 065
     Dates: start: 20140128
  3. FLUDEX-SR [Concomitant]
     Active Substance: INDAPAMIDE
     Indication: HYPERTENSION
     Dosage: 1 TAB, QD
     Route: 065
     Dates: start: 20140211
  4. MAGNESIUM OXIDE. [Concomitant]
     Active Substance: MAGNESIUM OXIDE
     Indication: CONSTIPATION
     Dosage: 250 MG, 1C, AS REQUIRED
     Route: 065
     Dates: start: 20170217
  5. ENTRECTINIB [Suspect]
     Active Substance: ENTRECTINIB
     Indication: NEOPLASM MALIGNANT
     Dosage: ON 17/MAR/2017, HE RECEIVED THE MOST RECENT DOSE OF ENTRECTINIB PRIOR TO THE ADVERSE EVENT ONSET
     Route: 048
     Dates: start: 20170317
  6. TYLENOL 8HR [Concomitant]
     Active Substance: ACETAMINOPHEN
     Indication: PROCEDURAL PAIN
     Dosage: 650 MG, 1T, PRN
     Route: 065
     Dates: start: 20170306
  7. TAMBOCOR [Concomitant]
     Active Substance: FLECAINIDE ACETATE
     Indication: ARRHYTHMIA
     Dosage: 150 MG, 1T, QD
     Route: 065
     Dates: start: 20140128
  8. CODEINE [Concomitant]
     Active Substance: CODEINE
     Indication: COUGH
     Dosage: 20 MG, PRN
     Route: 065
     Dates: start: 20170227

REACTIONS (1)
  - Sinus arrhythmia [Recovered/Resolved]

NARRATIVE: CASE EVENT DATE: 20170317
